FAERS Safety Report 4839752-5 (Version None)
Quarter: 2005Q4

REPORT INFORMATION
  Report Type: 
  Country: None (occurrence: None)
  Receive Date: 20051129
  Receipt Date: 20050804
  Transmission Date: 20060501
  Serious: No
  Sender: FDA-Public Use
  Company Number: US-GLAXOSMITHKLINE-A0569216A

PATIENT
  Age: 83 Year
  Sex: Male
  Weight: 75 kg

DRUGS (4)
  1. BUPROPION HCL [Suspect]
     Indication: DEPRESSION
     Dosage: 150MG UNKNOWN
     Route: 048
  2. FUROSAMIDE [Suspect]
     Dosage: 20MG TWICE PER DAY
     Route: 048
     Dates: start: 20041001
  3. THYROID TAB [Concomitant]
     Indication: THYROID DISORDER
     Route: 048
  4. HYDROCORTISONE [Concomitant]
     Indication: ADRENAL DISORDER

REACTIONS (1)
  - DRY MOUTH [None]
